FAERS Safety Report 5955340-1 (Version None)
Quarter: 2008Q4

REPORT INFORMATION
  Report Type: 
  Country: None (occurrence: None)
  Receive Date: 20081117
  Receipt Date: 20081105
  Transmission Date: 20090506
  Serious: Yes (Other)
  Sender: FDA-Public Use
  Company Number: RU-JNJCH-2008054216

PATIENT
  Sex: Male

DRUGS (3)
  1. ASPIRIN [Suspect]
     Indication: ANGINA PECTORIS
     Route: 048
  2. ISOSORBIDE DINITRATE [Suspect]
     Indication: ANGINA PECTORIS
     Dosage: TEXT:UNSPECIFIED
     Route: 048
  3. METOPROLOL TARTRATE [Suspect]
     Indication: ANGINA PECTORIS
     Dosage: TEXT:UNSPECIFIED
     Route: 048

REACTIONS (1)
  - ANGINA PECTORIS [None]
